FAERS Safety Report 8850885 (Version 1)
Quarter: 2012Q4

REPORT INFORMATION
  Report Type: 
  Country: US (occurrence: US)
  Receive Date: 20121019
  Receipt Date: 20121019
  Transmission Date: 20130627
  Serious: No
  Sender: FDA-Public Use
  Company Number: US-PFIZER INC-2012258509

PATIENT
  Age: 52 Year
  Sex: Female
  Weight: 51.7 kg

DRUGS (2)
  1. ARTHROTEC [Suspect]
     Indication: RHEUMATOID ARTHRITIS
     Dosage: 200ug/50mg, 3x/day
     Route: 048
     Dates: start: 201207, end: 201208
  2. HYDROCHLOROTHIAZIDE [Concomitant]
     Indication: HYPERTENSION
     Dosage: UNK

REACTIONS (7)
  - Abdominal pain upper [Recovered/Resolved]
  - Abdominal pain upper [Recovered/Resolved]
  - Flatulence [Recovered/Resolved]
  - Pain [Recovered/Resolved]
  - Abdominal distension [Recovered/Resolved]
  - Malaise [Recovered/Resolved]
  - Diarrhoea [Recovered/Resolved]
